FAERS Safety Report 20919765 (Version 1)
Quarter: 2022Q2

REPORT INFORMATION
  Report Type: Spontaneous
  Country: US (occurrence: None)
  Receive Date: 20220604
  Receipt Date: 20220604
  Transmission Date: 20220721
  Serious: Yes (unspecified)
  Sender: FDA-Public Use
  Company Number: None

PATIENT
  Age: 40 Year
  Sex: Female
  Weight: 99.79 kg

DRUGS (2)
  1. LEVONORGESTREL [Suspect]
     Active Substance: LEVONORGESTREL
     Dates: start: 20200106
  2. Ievothyroxine [Concomitant]

REACTIONS (3)
  - Seizure [None]
  - Loss of consciousness [None]
  - Complication associated with device [None]

NARRATIVE: CASE EVENT DATE: 20220530
